FAERS Safety Report 25105839 (Version 1)
Quarter: 2025Q1

REPORT INFORMATION
  Report Type: Spontaneous
  Country: US (occurrence: US)
  Receive Date: 20250321
  Receipt Date: 20250321
  Transmission Date: 20250409
  Serious: No
  Sender: BRAEBURN PHARMACEUTICALS
  Company Number: US-BRAEBURN-US-BRA-25-000082

PATIENT
  Sex: Female

DRUGS (3)
  1. BRIXADI [Suspect]
     Active Substance: BUPRENORPHINE
     Indication: Product used for unknown indication
     Dosage: 36 MILLIGRAM, WEEKLY
     Route: 065
  2. BRIXADI [Suspect]
     Active Substance: BUPRENORPHINE
     Dosage: UNK, MONTHLY
     Route: 065
  3. BRIXADI [Suspect]
     Active Substance: BUPRENORPHINE
     Dosage: 36 MILLIGRAM, WEEKLY
     Route: 065

REACTIONS (1)
  - Angioedema [Unknown]
